FAERS Safety Report 7676529-X (Version None)
Quarter: 2011Q3

REPORT INFORMATION
  Report Type: 
  Country: None (occurrence: None)
  Receive Date: 20110811
  Receipt Date: 20110729
  Transmission Date: 20111222
  Serious: Yes (Other)
  Sender: FDA-Public Use
  Company Number: IE-JNJFOC-20110801339

PATIENT
  Age: 7 Decade
  Sex: Female

DRUGS (4)
  1. PPI [Concomitant]
     Route: 065
  2. REMICADE [Suspect]
     Indication: COLITIS
     Route: 042
     Dates: start: 20080101
  3. ALL OTHER THERAPEUTIC PRODUCTS [Concomitant]
     Route: 065
  4. AZATHIOPRINE [Concomitant]
     Route: 065

REACTIONS (7)
  - OXYGEN SATURATION DECREASED [None]
  - DRUG SPECIFIC ANTIBODY PRESENT [None]
  - PALPITATIONS [None]
  - WHEEZING [None]
  - INFUSION RELATED REACTION [None]
  - CHILLS [None]
  - TACHYCARDIA [None]
